FAERS Safety Report 4317213-X (Version None)
Quarter: 2004Q1

REPORT INFORMATION
  Report Type: 
  Country: None (occurrence: None)
  Receive Date: 20040312
  Receipt Date: 20040305
  Transmission Date: 20041129
  Serious: Yes (Hospitalization)
  Sender: FDA-Public Use
  Company Number: 031-0981-980064

PATIENT
  Age: 42 Year
  Sex: Male
  Weight: 69.5 kg

DRUGS (2)
  1. ATORVASTATIN CALCIUM [Suspect]
     Indication: HYPERCHOLESTEROLAEMIA
     Dosage: 80 MG (DAILY), ORAL
     Route: 048
     Dates: start: 19980922, end: 19980927
  2. RANITIDINE [Concomitant]

REACTIONS (1)
  - GASTRIC PERFORATION [None]
